FAERS Safety Report 10263942 (Version 1)
Quarter: 2014Q2

REPORT INFORMATION
  Report Type: Spontaneous
  Country: US (occurrence: US)
  Receive Date: 20140627
  Receipt Date: 20140627
  Transmission Date: 20141212
  Serious: Yes (Other)
  Sender: FDA-Public Use
  Company Number: US-ORAPHARMA-QUINORA-2014-149

PATIENT
  Sex: 0

DRUGS (2)
  1. ARESTIN [Suspect]
     Indication: PRODUCT USED FOR UNKNOWN INDICATION
     Dosage: UNK
     Route: 050
  2. ORAQIX [Concomitant]
     Indication: PRODUCT USED FOR UNKNOWN INDICATION
     Dosage: UNK
     Route: 061

REACTIONS (3)
  - Ageusia [Unknown]
  - Tongue discolouration [Recovering/Resolving]
  - Oral discomfort [Unknown]
